FAERS Safety Report 23196430 (Version 2)
Quarter: 2023Q4

REPORT INFORMATION
  Report Type: Report from Study
  Country: AR (occurrence: AR)
  Receive Date: 20231117
  Receipt Date: 20231122
  Transmission Date: 20240109
  Serious: Yes (Other)
  Sender: FDA-Public Use
  Company Number: AR-ABBVIE-5496229

PATIENT
  Age: 40 Year
  Sex: Female
  Weight: 60 kg

DRUGS (13)
  1. UPADACITINIB [Suspect]
     Active Substance: UPADACITINIB
     Indication: Product used for unknown indication
     Route: 048
     Dates: start: 20220302, end: 20220428
  2. UPADACITINIB [Suspect]
     Active Substance: UPADACITINIB
     Indication: Product used for unknown indication
     Route: 048
     Dates: start: 20231024
  3. UPADACITINIB [Suspect]
     Active Substance: UPADACITINIB
     Indication: Product used for unknown indication
     Route: 048
     Dates: start: 20220505, end: 20230822
  4. PREDNISOLONE [Concomitant]
     Active Substance: PREDNISOLONE
     Indication: Product used for unknown indication
     Dates: start: 20220811, end: 20220930
  5. PREDNISOLONE [Concomitant]
     Active Substance: PREDNISOLONE
     Indication: Product used for unknown indication
     Dates: start: 20221001, end: 20230530
  6. METHOTREXATE [Concomitant]
     Active Substance: METHOTREXATE
     Indication: Product used for unknown indication
     Dates: start: 2019, end: 20221004
  7. NAPROXEN [Concomitant]
     Active Substance: NAPROXEN
     Indication: Product used for unknown indication
     Dates: start: 2019, end: 20220428
  8. NAPROXEN [Concomitant]
     Active Substance: NAPROXEN
     Indication: Product used for unknown indication
     Dosage: TIME INTERVAL: AS NECESSARY
     Dates: start: 20221001
  9. NAPROXEN [Concomitant]
     Active Substance: NAPROXEN
     Indication: Product used for unknown indication
     Dates: start: 20220505, end: 20220930
  10. PREDNISONE [Concomitant]
     Active Substance: PREDNISONE
     Indication: Product used for unknown indication
     Dates: start: 2019, end: 20220428
  11. PREDNISONE [Concomitant]
     Active Substance: PREDNISONE
     Indication: Product used for unknown indication
     Dates: start: 20220505, end: 20220810
  12. BETAMETHASONE SODIUM PHOSPHATE;DICLOFENAC POTASSIUM [Concomitant]
     Indication: Product used for unknown indication
     Dosage: DICLOFENAC POTASSIUM 75.00 MG, BETAMETHASONE SODIUM PHOSPHATE 2.63 MG
     Dates: start: 20220328, end: 20220330
  13. BCG VACCINE [Concomitant]
     Active Substance: BCG VACCINE
     Indication: Tuberculosis immunisation

REACTIONS (11)
  - Cervix carcinoma stage 0 [Recovered/Resolved]
  - Heavy menstrual bleeding [Recovered/Resolved]
  - Muscle contracture [Recovered/Resolved]
  - Papilloma viral infection [Recovered/Resolved]
  - Nasopharyngitis [Recovered/Resolved]
  - Pruritus [Recovered/Resolved]
  - Laryngitis [Recovered/Resolved]
  - Musculoskeletal chest pain [Recovered/Resolved]
  - Chondritis [Recovered/Resolved]
  - Acne [Recovered/Resolved]
  - Anaemia [Recovered/Resolved]

NARRATIVE: CASE EVENT DATE: 20220428
